FAERS Safety Report 5984853-1 (Version None)
Quarter: 2008Q4

REPORT INFORMATION
  Report Type: 
  Country: None (occurrence: None)
  Receive Date: 20081202
  Receipt Date: 20081118
  Transmission Date: 20090506
  Serious: Yes (Hospitalization)
  Sender: FDA-Public Use
  Company Number: 005038

PATIENT
  Age: 68 Year
  Sex: Male

DRUGS (11)
  1. PLETAL [Suspect]
     Indication: CEREBRAL INFARCTION
     Dosage: 100 MG, BID
     Route: 048
     Dates: start: 20081028, end: 20081104
  2. TOFRANIL [Concomitant]
  3. DEPAS (ETIZOLAM) TABLET [Concomitant]
  4. ALINAMIN-F (FURSULTIAMINE) TABLET [Concomitant]
  5. IDOMETHINE (INDOMETCAIN) TAPE [Concomitant]
  6. STICK ZENOL (METHYL  SALICYLATE_GLYCYRRHETIC) OINTMENT, CREAM [Concomitant]
  7. NORVASC [Concomitant]
  8. SILECE (FLUNITRAZEPAM) TABLET [Concomitant]
  9. NU-LOTAN (TERBINAFINE) OINTMENT, CREAM [Concomitant]
  10. PL (NON-PYRINE COLD PREPARATION) GRANULE [Concomitant]
  11. ALESION (EPINASTINE HYDROCHLORIDE) TABLET [Concomitant]

REACTIONS (2)
  - CARDIAC FAILURE [None]
  - SUPRAVENTRICULAR EXTRASYSTOLES [None]
